FAERS Safety Report 24868847 (Version 1)
Quarter: 2025Q1

REPORT INFORMATION
  Report Type: Spontaneous
  Country: US (occurrence: None)
  Receive Date: 20250117
  Receipt Date: 20250117
  Transmission Date: 20250409
  Serious: Yes (Life-Threatening, Hospitalization, Disabling)
  Sender: FDA-CTU
  Company Number: None

PATIENT
  Age: 39 Year
  Sex: Female
  Weight: 56.25 kg

DRUGS (3)
  1. MIRENA [Suspect]
     Active Substance: LEVONORGESTREL
     Indication: Uterine polyp
     Route: 050
     Dates: start: 20170801, end: 20181101
  2. BETAMETHASONE [Concomitant]
     Active Substance: BETAMETHASONE
  3. IBUPROFEN [Concomitant]
     Active Substance: IBUPROFEN

REACTIONS (5)
  - Suicidal ideation [None]
  - Depression [None]
  - Weight decreased [None]
  - Sleep disorder [None]
  - Crying [None]

NARRATIVE: CASE EVENT DATE: 20170901
